FAERS Safety Report 4366574-4 (Version None)
Quarter: 2004Q2

REPORT INFORMATION
  Report Type: 
  Country: None (occurrence: None)
  Receive Date: 20040527
  Receipt Date: 20031124
  Transmission Date: 20050107
  Serious: Yes (Other)
  Sender: FDA-Public Use
  Company Number: CA-GLAXOSMITHKLINE-A0441505A

PATIENT
  Sex: Male

DRUGS (1)
  1. HEPTOVIR [Suspect]
     Indication: HEPATITIS B
     Route: 048
     Dates: start: 20030123

REACTIONS (16)
  - AMNESIA [None]
  - AORTIC VALVE DISEASE [None]
  - COUGH [None]
  - DRUG INEFFECTIVE [None]
  - DYSPNOEA [None]
  - ERECTILE DYSFUNCTION [None]
  - HEART RATE IRREGULAR [None]
  - HYPOXIA [None]
  - INFERTILITY [None]
  - LIBIDO DECREASED [None]
  - MYALGIA [None]
  - NERVOUS SYSTEM DISORDER [None]
  - PERSONALITY DISORDER [None]
  - PULMONARY FUNCTION TEST DECREASED [None]
  - SEXUAL DYSFUNCTION [None]
  - STRESS SYMPTOMS [None]
